FAERS Safety Report 13458593 (Version 5)
Quarter: 2019Q2

REPORT INFORMATION
  Report Type: Report from Study
  Country: PL (occurrence: PL)
  Receive Date: 20170419
  Receipt Date: 20190501
  Transmission Date: 20190711
  Serious: Yes (Hospitalization)
  Sender: FDA-Public Use
  Company Number: PL-ROCHE-1507260

PATIENT
  Age: 27 Year
  Sex: Male

DRUGS (18)
  1. INTERFERON BETA-1A [Suspect]
     Active Substance: INTERFERON BETA-1A
     Indication: RELAPSING-REMITTING MULTIPLE SCLEROSIS
     Dosage: FREQUENCY AS PER PROTOCOL.
     Route: 058
     Dates: start: 20130110
  2. OCRELIZUMAB. [Suspect]
     Active Substance: OCRELIZUMAB
     Dosage: TOTAL VOLUME: 520 ML; OLE WEEK 24?FREQUENCY AS PER PROTOCOL.?FURTHER DOSES OF OLE OCRELIZUMAB WERE R
     Route: 042
     Dates: start: 20150519
  3. ZYRTEC [Concomitant]
     Active Substance: CETIRIZINE HYDROCHLORIDE
     Indication: PREMEDICATION
     Dosage: OTHER DOSES ON: 23/JAN/2013 (BASELINE WEEK 2), 28/JUN/2013 (WEEK 24), 13/DEC/2013 (WEEK 48) AND 30/M
     Route: 065
     Dates: start: 20130110
  4. MEDROL [Concomitant]
     Active Substance: METHYLPREDNISOLONE
     Route: 065
     Dates: start: 20140416, end: 20140422
  5. PLACEBO [Suspect]
     Active Substance: UNSPECIFIED INGREDIENT
     Route: 042
     Dates: start: 20131213, end: 20131213
  6. OCRELIZUMAB. [Suspect]
     Active Substance: OCRELIZUMAB
     Indication: RELAPSING-REMITTING MULTIPLE SCLEROSIS
     Dosage: FREQUENCY AS PER PROTOCOL. C5: 300MG (260 ML) DUAL INFUSION ON D1, D15.?THIS IS LAST DOSE PRIOR TO P
     Route: 042
     Dates: start: 20141128
  7. PARACETAMOL [Concomitant]
     Active Substance: ACETAMINOPHEN
     Indication: PREMEDICATION
     Dosage: OTHER DOSES ON: 23/JAN/2013 (BASELINE WEEK 2), 28/JUN/2013 (WEEK 24), 13/DEC/2013 (WEEK 48) AND 30/M
     Route: 065
     Dates: start: 20130110
  8. KLABAX [Concomitant]
     Active Substance: CLARITHROMYCIN
     Route: 065
     Dates: start: 20140521, end: 20140529
  9. PLACEBO [Suspect]
     Active Substance: UNSPECIFIED INGREDIENT
     Route: 042
     Dates: start: 20140530, end: 20140530
  10. INTERFERON BETA-1A [Suspect]
     Active Substance: INTERFERON BETA-1A
     Dosage: DURING WEEKS 3 AND 4: 22 MICROGRAM INJECTION 3 TIMES PER WEEK;?FROM THE 5TH WEEK: 44 MICROGRAM INJEC
     Route: 058
     Dates: start: 20141114
  11. PLACEBO [Suspect]
     Active Substance: UNSPECIFIED INGREDIENT
     Route: 042
     Dates: start: 20130123, end: 20130123
  12. PLACEBO [Suspect]
     Active Substance: UNSPECIFIED INGREDIENT
     Route: 042
     Dates: start: 20130628, end: 20130628
  13. NAPROXEN. [Concomitant]
     Active Substance: NAPROXEN
     Route: 065
     Dates: start: 20140307, end: 20140915
  14. MEDROL [Concomitant]
     Active Substance: METHYLPREDNISOLONE
     Route: 065
     Dates: start: 20140430, end: 20140507
  15. PLACEBO [Suspect]
     Active Substance: UNSPECIFIED INGREDIENT
     Indication: RELAPSING-REMITTING MULTIPLE SCLEROSIS
     Dosage: FREQUENCY AS PER PROTOCOL. DUAL INFUSION ON D1, D15 (23/JAN/2013). OTHER DOSES ADMINISTERED ON: 28/J
     Route: 042
     Dates: start: 20130110, end: 20130110
  16. METHYLPREDNISOLONE. [Concomitant]
     Active Substance: METHYLPREDNISOLONE
     Indication: PREMEDICATION
     Dosage: OTHER DOSES ON: 23/JAN/2013 (BASELINE WEEK 2), 28/JUN/2013 (WEEK 24), 13/DEC/2013 (WEEK 48) AND 30/M
     Route: 065
     Dates: start: 20130110, end: 20150519
  17. RITUXIMAB. [Concomitant]
     Active Substance: RITUXIMAB
     Route: 065
  18. MEDROL [Concomitant]
     Active Substance: METHYLPREDNISOLONE
     Route: 065
     Dates: start: 20140423, end: 20140429

REACTIONS (1)
  - Pharyngitis [Recovered/Resolved]

NARRATIVE: CASE EVENT DATE: 20141208
